FAERS Safety Report 5803606-8 (Version None)
Quarter: 2008Q3

REPORT INFORMATION
  Report Type: 
  Country: None (occurrence: None)
  Receive Date: 20080703
  Receipt Date: 20080623
  Transmission Date: 20090109
  Serious: Yes (Hospitalization)
  Sender: FDA-Public Use
  Company Number: GXKR2008GB05780

PATIENT
  Age: 48 Year
  Sex: Male

DRUGS (1)
  1. PARACETAMOL (NGX) (PARACETAMOL) TABLET, 500MG [Suspect]
     Dosage: 100 DF, ORAL
     Route: 048

REACTIONS (7)
  - ALANINE AMINOTRANSFERASE INCREASED [None]
  - EPISTAXIS [None]
  - JAUNDICE [None]
  - OVERDOSE [None]
  - PLATELET TRANSFUSION [None]
  - PROTHROMBIN TIME RATIO INCREASED [None]
  - THROMBOCYTOPENIA [None]
